FAERS Safety Report 7753962-9 (Version None)
Quarter: 2011Q3

REPORT INFORMATION
  Report Type: 
  Country: None (occurrence: None)
  Receive Date: 20110915
  Receipt Date: 20110906
  Transmission Date: 20111222
  Serious: Yes (Other)
  Sender: FDA-Public Use
  Company Number: US-ASTRAZENECA-2011SE53463

PATIENT
  Age: 70 Year
  Sex: Female

DRUGS (3)
  1. CRESTOR [Suspect]
     Route: 048
  2. LIPITOR [Suspect]
     Route: 065
  3. ZOCOR [Suspect]
     Route: 065

REACTIONS (5)
  - MIGRAINE [None]
  - FALL [None]
  - FRACTURE [None]
  - PAIN [None]
  - DRUG INEFFECTIVE [None]
